FAERS Safety Report 5137891-5 (Version None)
Quarter: 2006Q4

REPORT INFORMATION
  Report Type: 
  Country: None (occurrence: None)
  Receive Date: 20061030
  Receipt Date: 20060206
  Transmission Date: 20070319
  Serious: No
  Sender: FDA-Public Use
  Company Number: US-GLAXOSMITHKLINE-A0592464A

PATIENT
  Age: 56 Year
  Sex: Female

DRUGS (12)
  1. ADVAIR HFA [Suspect]
     Indication: ASTHMA
     Dosage: 1PUFF TWICE PER DAY
     Route: 055
  2. SINGULAIR [Concomitant]
  3. PREVACID [Concomitant]
  4. ENTEX LA [Concomitant]
  5. IMDUR [Concomitant]
  6. SYNTHROID [Concomitant]
  7. CALCIFEROL [Concomitant]
  8. WELLBUTRIN SR [Concomitant]
  9. DIAVAN [Concomitant]
  10. PROVENTIL [Concomitant]
  11. NASACORT [Concomitant]
  12. TRAVATAN [Concomitant]

REACTIONS (3)
  - DRUG INEFFECTIVE [None]
  - DYSPNOEA [None]
  - PHARMACEUTICAL PRODUCT COMPLAINT [None]
